FAERS Safety Report 6669049-2 (Version None)
Quarter: 2010Q2

REPORT INFORMATION
  Report Type: 
  Country: None (occurrence: None)
  Receive Date: 20100406
  Receipt Date: 20100331
  Transmission Date: 20101027
  Serious: Yes (Other)
  Sender: FDA-Public Use
  Company Number: US-BAYER-201013759BCC

PATIENT
  Age: 52 Year
  Sex: Female
  Weight: 79 kg

DRUGS (1)
  1. ALKA SELTZER PLUS ORANGE ZEST EFFERVESCENT TABLETS WITH ASPIRIN [Suspect]
     Indication: NASOPHARYNGITIS
     Dosage: TOTAL DAILY DOSE: 2 DF  UNIT DOSE: 1 DF
     Route: 048
     Dates: start: 20100331

REACTIONS (3)
  - ASTHMA [None]
  - DYSPNOEA [None]
  - PHARYNGEAL OEDEMA [None]
